FAERS Safety Report 13712853 (Version 1)
Quarter: 2017Q3

REPORT INFORMATION
  Report Type: Spontaneous
  Country: NL (occurrence: NL)
  Receive Date: 20170703
  Receipt Date: 20170703
  Transmission Date: 20171127
  Serious: Yes (Life-Threatening)
  Sender: FDA-Public Use
  Company Number: NL-TEVA-782705ACC

PATIENT
  Age: 72 Year
  Sex: Female

DRUGS (11)
  1. AMITRIPTYLINE TABLET 10MG (HCL) [Concomitant]
     Dosage: 10 MILLIGRAM DAILY;
     Route: 048
     Dates: start: 20131008
  2. PREDNISOLON TABLET  5MG [Concomitant]
     Active Substance: PREDNISOLONE
     Dosage: 5 MILLIGRAM DAILY;
     Route: 048
     Dates: start: 20151110
  3. CELECOXIB CAPSULE 200MG [Concomitant]
     Dosage: 400 MILLIGRAM DAILY;
     Route: 048
     Dates: start: 20081016, end: 20170523
  4. METHOTREXATE TABLET 10MG [Suspect]
     Active Substance: METHOTREXATE
     Indication: RHEUMATOID ARTHRITIS
     Route: 048
     Dates: start: 20170131, end: 20170523
  5. VALSARTAN TABLET OMHULD 320MG [Concomitant]
     Dosage: 320 MILLIGRAM DAILY;
     Route: 048
  6. FOLIUMZUUR TABLET 5MG [Concomitant]
     Active Substance: FOLIC ACID
     Dosage: 10MG ONCE WEEKLY
     Route: 048
     Dates: start: 20170131, end: 20170523
  7. CETIRIZINE TABLET 10MG [Concomitant]
     Dosage: 20 MILLIGRAM DAILY;
     Route: 048
  8. PARACETAMOL TABLET 1000MG [Concomitant]
     Dosage: 3000 MILLIGRAM DAILY;
     Route: 048
     Dates: start: 20120913
  9. OMEPRAZOL CAPSULE MGA 20MG [Concomitant]
     Dosage: 40 MILLIGRAM DAILY;
     Route: 048
     Dates: start: 20050101
  10. GOLIMUMAB INJVLST 100MG/ML [Concomitant]
     Active Substance: GOLIMUMAB
     Dosage: 50MG, ONCE EVERY THREE WEEKS
     Route: 058
     Dates: start: 20151110
  11. CALCI CHEW D3 KAUWTABLET 1000MG/800IE [Concomitant]
     Dosage: 1 DOSAGE FORMS DAILY;
     Route: 048
     Dates: start: 20090703

REACTIONS (1)
  - Blister [Recovered/Resolved]

NARRATIVE: CASE EVENT DATE: 20170523
